FAERS Safety Report 6456016-7 (Version None)
Quarter: 2009Q4

REPORT INFORMATION
  Report Type: 
  Country: None (occurrence: None)
  Receive Date: 20091125
  Receipt Date: 20091117
  Transmission Date: 20100525
  Serious: No
  Sender: FDA-Public Use
  Company Number: US-JNJFOC-20080502106

PATIENT
  Sex: Female
  Weight: 37.2 kg

DRUGS (7)
  1. DURAGESIC-100 [Suspect]
     Indication: PAIN
     Dosage: INTERMITTENT WITH UNSPECIFIED FENTANYL
     Route: 062
  2. FENTANYL CITRATE [Concomitant]
     Indication: PAIN
     Route: 062
  3. TOPROL-XL [Concomitant]
     Indication: BLOOD PRESSURE
     Route: 048
  4. COZAAR [Concomitant]
     Indication: BLOOD PRESSURE
     Route: 048
  5. ALLEGRA [Concomitant]
     Indication: MULTIPLE ALLERGIES
     Dosage: 180MG 1/2 TABLET DAILY
     Route: 048
  6. ASPIRIN [Concomitant]
     Indication: CARDIAC DISORDER
     Route: 048
  7. ZOCOR [Concomitant]
     Indication: BLOOD CHOLESTEROL
     Route: 048

REACTIONS (2)
  - PAIN [None]
  - WRONG TECHNIQUE IN DRUG USAGE PROCESS [None]
